FAERS Safety Report 8519359-9 (Version None)
Quarter: 2012Q3

REPORT INFORMATION
  Report Type: 
  Country: None (occurrence: None)
  Receive Date: 20120718
  Receipt Date: 20120714
  Transmission Date: 20120928
  Serious: Yes (Hospitalization, Other)
  Sender: FDA-Public Use
  Company Number: PHHY2012AU060315

PATIENT
  Age: 33 Year
  Sex: Female

DRUGS (5)
  1. SYNTOCINON [Concomitant]
  2. DIGOXIN [Suspect]
     Indication: HEART RATE IRREGULAR
     Route: 042
  3. METOPROLOL SUCCINATE [Suspect]
     Indication: HEART RATE IRREGULAR
     Route: 042
  4. FLECAINIDE ACETATE [Suspect]
     Indication: HEART RATE IRREGULAR
     Route: 042
  5. ADENOSINE [Suspect]
     Indication: HEART RATE IRREGULAR

REACTIONS (7)
  - DYSPNOEA [None]
  - DRUG INEFFECTIVE [None]
  - HEART RATE INCREASED [None]
  - INDUCED LABOUR [None]
  - EJECTION FRACTION DECREASED [None]
  - HYPOTENSION [None]
  - MATERNAL EXPOSURE DURING PREGNANCY [None]
